FAERS Safety Report 4396325-9 (Version None)
Quarter: 2004Q3

REPORT INFORMATION
  Report Type: 
  Country: None (occurrence: None)
  Receive Date: 20040713
  Receipt Date: 20040624
  Transmission Date: 20050211
  Serious: Yes (Death, Other)
  Sender: FDA-Public Use
  Company Number: PHBS2004US08447

PATIENT
  Age: 4 Month
  Sex: Male

DRUGS (3)
  1. PAMIDRONATE DISODIUM [Suspect]
     Indication: OSTEOGENESIS IMPERFECTA
     Dosage: 0.23 MG/KG
  2. PAMIDRONATE DISODIUM [Suspect]
     Dosage: 0.45 MG/KG
  3. PAMIDRONATE DISODIUM [Suspect]
     Dosage: UNK, UNK

REACTIONS (7)
  - CONDITION AGGRAVATED [None]
  - OXYGEN SATURATION DECREASED [None]
  - RESPIRATORY DISTRESS [None]
  - RESPIRATORY FAILURE [None]
  - RESPIRATORY SYNCYTIAL VIRUS INFECTION [None]
  - TACHYPNOEA [None]
  - WHEEZING [None]
